FAERS Safety Report 10012517 (Version 2)
Quarter: 2014Q1

REPORT INFORMATION
  Report Type: Spontaneous
  Country: BR (occurrence: BR)
  Receive Date: 20140314
  Receipt Date: 20140317
  Transmission Date: 20141002
  Serious: Yes (Death, Other)
  Sender: FDA-Public Use
  Company Number: PHHY2014BR031063

PATIENT
  Age: 65 Year
  Sex: Male
  Weight: 47 kg

DRUGS (4)
  1. MYFORTIC [Suspect]
     Indication: ACQUIRED EPIDERMOLYSIS BULLOSA
     Dosage: 2 DF, QDAPPROXIMATELY 3 OR 4 YEARS
     Route: 048
  2. MYFORTIC [Suspect]
     Indication: OFF LABEL USE
  3. PREDNISONE [Concomitant]
     Indication: ACQUIRED EPIDERMOLYSIS BULLOSA
     Dosage: 1 DF, QD 13 YEARS AGO
     Route: 048
  4. CALCIUM [Concomitant]
     Indication: ACQUIRED EPIDERMOLYSIS BULLOSA
     Dosage: 1 DF, QD, 13 YEARS AGO
     Route: 048

REACTIONS (9)
  - Pulmonary oedema [Fatal]
  - Haemodynamic instability [Fatal]
  - Bacterial toxaemia [Fatal]
  - Accident [Unknown]
  - Inflammation [Recovering/Resolving]
  - Excoriation [Unknown]
  - Injury [Unknown]
  - Infection [Recovering/Resolving]
  - White blood cell count increased [Recovering/Resolving]
